FAERS Safety Report 24264804 (Version 2)
Quarter: 2024Q3

REPORT INFORMATION
  Report Type: Spontaneous
  Country: CA (occurrence: None)
  Receive Date: 20240829
  Receipt Date: 20240902
  Transmission Date: 20241017
  Serious: Yes (Life-Threatening, Hospitalization, Other)
  Sender: ASTRAZENECA
  Company Number: 2021A526581

PATIENT
  Age: 65 Year
  Sex: Female
  Weight: 69 kg

DRUGS (116)
  1. CANDESARTAN [Suspect]
     Active Substance: CANDESARTAN
     Indication: Hypertension
     Dosage: UNK
     Route: 048
  2. ATACAND [Suspect]
     Active Substance: CANDESARTAN CILEXETIL
     Indication: Hypertension
     Dosage: UNK
     Route: 048
  3. LISINOPRIL [Suspect]
     Active Substance: LISINOPRIL
     Indication: Hypertension
     Dosage: UNK
     Route: 048
  4. ESOMEPRAZOLE [Suspect]
     Active Substance: ESOMEPRAZOLE
     Indication: Product used for unknown indication
     Dosage: UNK
     Route: 042
  5. ESOMEPRAZOLE [Suspect]
     Active Substance: ESOMEPRAZOLE
     Indication: Product used for unknown indication
     Dosage: 40 MILLIGRAM
     Route: 048
  6. ASPIRIN [Suspect]
     Active Substance: ASPIRIN
     Indication: Product used for unknown indication
     Dosage: UNK
  7. ASPIRIN [Suspect]
     Active Substance: ASPIRIN
     Indication: Product used for unknown indication
     Dosage: 81 MILLIGRAM81.0MG UNKNOWN
  8. ASPIRIN [Suspect]
     Active Substance: ASPIRIN
     Indication: Product used for unknown indication
     Dosage: 1 DOSAGE FORM, QD1.0DF UNKNOWN
     Route: 048
  9. CALCIUM CARBONATE [Suspect]
     Active Substance: CALCIUM CARBONATE
     Indication: Product used for unknown indication
     Dosage: UNK
  10. ONDANSETRON [Suspect]
     Active Substance: ONDANSETRON
     Indication: Product used for unknown indication
     Dosage: UNK
  11. MORPHINE [Suspect]
     Active Substance: MORPHINE
     Indication: Product used for unknown indication
     Dosage: UNK
     Route: 030
  12. RITUXIMAB [Suspect]
     Active Substance: RITUXIMAB
     Indication: Sjogren^s syndrome
     Dosage: 1000 MILLIGRAM
     Route: 042
  13. RITUXIMAB [Suspect]
     Active Substance: RITUXIMAB
     Indication: Rheumatoid arthritis
     Dosage: 1000 MILLIGRAM
     Route: 042
  14. AMLODIPINE [Suspect]
     Active Substance: AMLODIPINE BESYLATE
     Indication: Product used for unknown indication
     Dosage: 5 MILLIGRAM, QD
     Route: 048
  15. AMLODIPINE [Suspect]
     Active Substance: AMLODIPINE BESYLATE
     Indication: Product used for unknown indication
     Dosage: 1 DOSAGE FORM1.0DF UNKNOWN
  16. AMLODIPINE [Suspect]
     Active Substance: AMLODIPINE BESYLATE
     Indication: Product used for unknown indication
     Dosage: 5 MILLIGRAM, QD
     Route: 048
  17. AMLODIPINE [Suspect]
     Active Substance: AMLODIPINE BESYLATE
     Indication: Product used for unknown indication
     Dosage: UNK
  18. METHOTREXATE [Suspect]
     Active Substance: METHOTREXATE
     Indication: Product used for unknown indication
     Dosage: UNK
  19. METHOTREXATE [Suspect]
     Active Substance: METHOTREXATE
     Indication: Product used for unknown indication
     Dosage: UNK
     Route: 064
  20. METFORMIN [Suspect]
     Active Substance: METFORMIN HYDROCHLORIDE
     Indication: Product used for unknown indication
     Dosage: 850 MILLIGRAM, TID
     Route: 048
  21. METFORMIN [Suspect]
     Active Substance: METFORMIN HYDROCHLORIDE
     Indication: Product used for unknown indication
     Dosage: UNK
     Route: 048
  22. METFORMIN [Suspect]
     Active Substance: METFORMIN HYDROCHLORIDE
     Indication: Product used for unknown indication
     Dosage: UNK
     Route: 030
  23. ZOLPIDEM [Suspect]
     Active Substance: ZOLPIDEM TARTRATE
     Indication: Product used for unknown indication
     Dosage: UNK
  24. ZOLPIDEM [Suspect]
     Active Substance: ZOLPIDEM TARTRATE
     Indication: Product used for unknown indication
     Dosage: UNK
  25. ALISKIREN HEMIFUMARATE [Suspect]
     Active Substance: ALISKIREN HEMIFUMARATE
     Indication: Microalbuminuria
     Dosage: 150 MILLIGRAM, QD
     Route: 048
  26. ALISKIREN HEMIFUMARATE [Suspect]
     Active Substance: ALISKIREN HEMIFUMARATE
     Indication: Hypertension
     Dosage: 150 MILLIGRAM, QD
     Route: 048
  27. ALISKIREN HEMIFUMARATE [Suspect]
     Active Substance: ALISKIREN HEMIFUMARATE
     Indication: Off label use
     Dosage: 150 MILLIGRAM, QD
     Route: 048
  28. ALISKIREN HEMIFUMARATE [Suspect]
     Active Substance: ALISKIREN HEMIFUMARATE
     Indication: Microalbuminuria
     Dosage: 300 MILLIGRAM, QD
     Route: 048
  29. ALISKIREN HEMIFUMARATE [Suspect]
     Active Substance: ALISKIREN HEMIFUMARATE
     Indication: Hypertension
     Dosage: 300 MILLIGRAM, QD
     Route: 048
  30. ALISKIREN HEMIFUMARATE [Suspect]
     Active Substance: ALISKIREN HEMIFUMARATE
     Indication: Off label use
     Dosage: 300 MILLIGRAM, QD
     Route: 048
  31. ALISKIREN HEMIFUMARATE [Suspect]
     Active Substance: ALISKIREN HEMIFUMARATE
     Indication: Microalbuminuria
     Dosage: UNK
  32. ALISKIREN HEMIFUMARATE [Suspect]
     Active Substance: ALISKIREN HEMIFUMARATE
     Indication: Hypertension
     Dosage: UNK
  33. ALISKIREN HEMIFUMARATE [Suspect]
     Active Substance: ALISKIREN HEMIFUMARATE
     Indication: Off label use
     Dosage: UNK
  34. ALTACE [Suspect]
     Active Substance: RAMIPRIL
     Indication: Product used for unknown indication
     Dosage: UNK
     Route: 048
  35. ACETAMINOPHEN [Suspect]
     Active Substance: ACETAMINOPHEN
     Indication: Arthritis
     Dosage: 650 MILLIGRAM, QD
     Route: 048
  36. GLICLAZIDE [Suspect]
     Active Substance: GLICLAZIDE
     Indication: Diabetes mellitus
     Dosage: UNK
  37. GLICLAZIDE [Suspect]
     Active Substance: GLICLAZIDE
     Indication: Blood pressure measurement
     Dosage: UNK
  38. METHYLPREDNISOLONE SODIUM SUCCINATE [Suspect]
     Active Substance: METHYLPREDNISOLONE SODIUM SUCCINATE
     Indication: Premedication
     Dosage: 100 MILLIGRAM, QD
     Route: 042
  39. BISOPROLOL FUMARATE [Suspect]
     Active Substance: BISOPROLOL FUMARATE
     Indication: Product used for unknown indication
     Dosage: UNK
  40. GLICLAZIDE [Suspect]
     Active Substance: GLICLAZIDE
     Indication: Diabetes mellitus
     Dosage: UNK
  41. GLICLAZIDE [Suspect]
     Active Substance: GLICLAZIDE
     Indication: Blood pressure measurement
     Dosage: UNK
  42. PREDNISONE [Suspect]
     Active Substance: PREDNISONE
     Indication: Product used for unknown indication
     Dosage: UNK
  43. COSENTYX [Suspect]
     Active Substance: SECUKINUMAB
     Indication: Psoriatic arthropathy
     Dosage: UNK
  44. COSENTYX [Suspect]
     Active Substance: SECUKINUMAB
     Indication: Psoriasis
     Dosage: UNK
  45. COSENTYX [Suspect]
     Active Substance: SECUKINUMAB
     Indication: Hypertension
     Dosage: UNK
  46. COSENTYX [Suspect]
     Active Substance: SECUKINUMAB
     Indication: Psoriatic arthropathy
     Dosage: UNK
  47. COSENTYX [Suspect]
     Active Substance: SECUKINUMAB
     Indication: Psoriasis
     Dosage: UNK
  48. COSENTYX [Suspect]
     Active Substance: SECUKINUMAB
     Indication: Hypertension
     Dosage: UNK
  49. COSENTYX [Suspect]
     Active Substance: SECUKINUMAB
     Indication: Psoriatic arthropathy
     Dosage: UNK
  50. COSENTYX [Suspect]
     Active Substance: SECUKINUMAB
     Indication: Psoriasis
     Dosage: UNK
  51. COSENTYX [Suspect]
     Active Substance: SECUKINUMAB
     Indication: Hypertension
     Dosage: UNK
  52. COSENTYX [Suspect]
     Active Substance: SECUKINUMAB
     Indication: Psoriatic arthropathy
     Dosage: UNK
  53. COSENTYX [Suspect]
     Active Substance: SECUKINUMAB
     Indication: Psoriasis
     Dosage: UNK
  54. COSENTYX [Suspect]
     Active Substance: SECUKINUMAB
     Indication: Hypertension
     Dosage: UNK
  55. COSENTYX [Suspect]
     Active Substance: SECUKINUMAB
     Indication: Psoriatic arthropathy
     Dosage: 300 MILLIGRAM, MONTHLY
     Route: 058
  56. COSENTYX [Suspect]
     Active Substance: SECUKINUMAB
     Indication: Psoriasis
     Dosage: 300 MILLIGRAM, MONTHLY
     Route: 058
  57. COSENTYX [Suspect]
     Active Substance: SECUKINUMAB
     Indication: Hypertension
     Dosage: 300 MILLIGRAM, MONTHLY
     Route: 058
  58. COSENTYX [Suspect]
     Active Substance: SECUKINUMAB
     Indication: Psoriatic arthropathy
     Dosage: 30 MILLIGRAM, 1/WEEK
  59. COSENTYX [Suspect]
     Active Substance: SECUKINUMAB
     Indication: Psoriasis
     Dosage: 30 MILLIGRAM, 1/WEEK
  60. COSENTYX [Suspect]
     Active Substance: SECUKINUMAB
     Indication: Hypertension
     Dosage: 30 MILLIGRAM, 1/WEEK
  61. COSENTYX [Suspect]
     Active Substance: SECUKINUMAB
     Indication: Psoriatic arthropathy
     Dosage: 42.857 MILLIGRAM
     Route: 058
  62. COSENTYX [Suspect]
     Active Substance: SECUKINUMAB
     Indication: Psoriasis
     Dosage: 42.857 MILLIGRAM
     Route: 058
  63. COSENTYX [Suspect]
     Active Substance: SECUKINUMAB
     Indication: Hypertension
     Dosage: 42.857 MILLIGRAM
     Route: 058
  64. COSENTYX [Suspect]
     Active Substance: SECUKINUMAB
     Indication: Psoriatic arthropathy
     Dosage: 42.857 MILLIGRAM
  65. COSENTYX [Suspect]
     Active Substance: SECUKINUMAB
     Indication: Psoriasis
     Dosage: 42.857 MILLIGRAM
  66. COSENTYX [Suspect]
     Active Substance: SECUKINUMAB
     Indication: Hypertension
     Dosage: 42.857 MILLIGRAM
  67. COSENTYX [Suspect]
     Active Substance: SECUKINUMAB
     Indication: Psoriatic arthropathy
     Dosage: 300 MILLIGRAM
     Route: 058
  68. COSENTYX [Suspect]
     Active Substance: SECUKINUMAB
     Indication: Psoriasis
     Dosage: 300 MILLIGRAM
     Route: 058
  69. COSENTYX [Suspect]
     Active Substance: SECUKINUMAB
     Indication: Hypertension
     Dosage: 300 MILLIGRAM
     Route: 058
  70. COSENTYX [Suspect]
     Active Substance: SECUKINUMAB
     Indication: Psoriatic arthropathy
     Dosage: 10 MILLIGRAM
     Route: 058
  71. COSENTYX [Suspect]
     Active Substance: SECUKINUMAB
     Indication: Psoriasis
     Dosage: 10 MILLIGRAM
     Route: 058
  72. COSENTYX [Suspect]
     Active Substance: SECUKINUMAB
     Indication: Hypertension
     Dosage: 10 MILLIGRAM
     Route: 058
  73. ERGOCALCIFEROL [Suspect]
     Active Substance: ERGOCALCIFEROL
     Indication: Product used for unknown indication
     Dosage: UNK
  74. IRBESARTAN [Suspect]
     Active Substance: IRBESARTAN
     Indication: Hypertension
     Dosage: UNK
     Route: 048
  75. IRBESARTAN [Suspect]
     Active Substance: IRBESARTAN
     Indication: Hypertension
     Dosage: 1 DOSAGE FORM, QD
     Route: 048
  76. IRBESARTAN [Suspect]
     Active Substance: IRBESARTAN
     Indication: Hypertension
     Dosage: 300 MILLIGRAM, QD
     Route: 048
  77. JANUVIA [Suspect]
     Active Substance: SITAGLIPTIN PHOSPHATE
     Indication: Product used for unknown indication
     Dosage: 100 MILLIGRAM, QD
     Route: 048
  78. ESOMEPRAZOLE MAGNESIUM\NAPROXEN [Suspect]
     Active Substance: ESOMEPRAZOLE MAGNESIUM\NAPROXEN
     Indication: Product used for unknown indication
     Dosage: UNK
     Route: 048
  79. DIPHENHYDRAMINE HYDROCHLORIDE [Suspect]
     Active Substance: DIPHENHYDRAMINE HYDROCHLORIDE
     Indication: Premedication
     Dosage: 50 MILLIGRAM, QD
     Route: 048
  80. SYNTHROID [Suspect]
     Active Substance: LEVOTHYROXINE SODIUM
     Indication: Product used for unknown indication
     Dosage: UNK
  81. SYNTHROID [Suspect]
     Active Substance: LEVOTHYROXINE SODIUM
     Indication: Product used for unknown indication
     Dosage: UNK
  82. LIPITOR [Suspect]
     Active Substance: ATORVASTATIN CALCIUM
     Indication: Product used for unknown indication
     Dosage: 20 MILLIGRAM, QD
     Route: 048
  83. LEVOTHYROXINE SODIUM [Suspect]
     Active Substance: LEVOTHYROXINE SODIUM
     Indication: Product used for unknown indication
     Dosage: UNK
  84. GRAVOL [Suspect]
     Active Substance: DIMENHYDRINATE
     Indication: Premedication
     Dosage: 100 MILLIGRAM, QD
  85. GRAVOL [Suspect]
     Active Substance: DIMENHYDRINATE
     Indication: Premedication
     Dosage: 50 MILLIGRAM, QD
  86. PROCHLORPERAZINE [Suspect]
     Active Substance: PROCHLORPERAZINE
     Indication: Vomiting
  87. ACITRETIN [Concomitant]
     Active Substance: ACITRETIN
     Indication: Microalbuminuria
     Dosage: UNK
  88. ACITRETIN [Concomitant]
     Active Substance: ACITRETIN
     Indication: Hypertension
     Dosage: UNK
  89. AMEVIVE [Concomitant]
     Active Substance: ALEFACEPT
     Indication: Microalbuminuria
     Dosage: UNK
  90. AMEVIVE [Concomitant]
     Active Substance: ALEFACEPT
     Indication: Hypertension
     Dosage: UNK
  91. AMEVIVE [Concomitant]
     Active Substance: ALEFACEPT
     Indication: Microalbuminuria
     Dosage: UNK
     Route: 030
  92. AMEVIVE [Concomitant]
     Active Substance: ALEFACEPT
     Indication: Hypertension
     Dosage: UNK
     Route: 030
  93. ASPIRIN [Concomitant]
     Active Substance: ASPIRIN
     Indication: Product used for unknown indication
     Dosage: 81 MILLIGRAM
  94. AVAPRO [Concomitant]
     Active Substance: IRBESARTAN
     Indication: Product used for unknown indication
     Dosage: UNK
  95. COAL TAR [Concomitant]
     Active Substance: COAL TAR
     Indication: Product used for unknown indication
     Dosage: UNK
  96. CYMBALTA [Concomitant]
     Active Substance: DULOXETINE HYDROCHLORIDE
     Indication: Product used for unknown indication
     Dosage: UNK
  97. DOVONEX [Concomitant]
     Active Substance: CALCIPOTRIENE
     Indication: Product used for unknown indication
     Dosage: UNK
  98. PANTOPRAZOLE MAGNESIUM [Concomitant]
     Active Substance: PANTOPRAZOLE MAGNESIUM
     Indication: Product used for unknown indication
     Dosage: UNK
  99. ROSUVASTATIN CALCIUM [Concomitant]
     Active Substance: ROSUVASTATIN CALCIUM
     Indication: Product used for unknown indication
     Dosage: UNK
  100. STELARA [Concomitant]
     Active Substance: USTEKINUMAB
     Indication: Product used for unknown indication
     Dosage: UNK
     Route: 058
  101. ZOLPIDEM [Concomitant]
     Active Substance: ZOLPIDEM TARTRATE
     Indication: Product used for unknown indication
     Dosage: UNK
  102. ACETAMINOPHEN\ASCORBIC ACID [Concomitant]
     Active Substance: ACETAMINOPHEN\ASCORBIC ACID
     Indication: Product used for unknown indication
     Dosage: UNK
  103. CYANOCOBALAMIN [Concomitant]
     Active Substance: CYANOCOBALAMIN
     Indication: Product used for unknown indication
     Dosage: UNK
  104. DEPO-MEDROL [Concomitant]
     Active Substance: METHYLPREDNISOLONE ACETATE
     Indication: Product used for unknown indication
     Dosage: UNK
  105. DOMPERIDONE [Concomitant]
     Active Substance: DOMPERIDONE
     Indication: Product used for unknown indication
     Dosage: UNK
  106. LEVOTHYROXINE [Concomitant]
     Active Substance: LEVOTHYROXINE\LEVOTHYROXINE SODIUM
     Indication: Product used for unknown indication
     Dosage: UNK
  107. EZETIMIBE [Concomitant]
     Active Substance: EZETIMIBE
     Indication: Product used for unknown indication
     Dosage: UNK
  108. GLUCOPHAGE [Concomitant]
     Active Substance: METFORMIN HYDROCHLORIDE
     Indication: Product used for unknown indication
     Dosage: UNK
  109. LANTUS [Concomitant]
     Active Substance: INSULIN GLARGINE
     Indication: Product used for unknown indication
     Dosage: UNK
  110. HUMALOG [Concomitant]
     Active Substance: INSULIN LISPRO
     Indication: Product used for unknown indication
     Dosage: UNK
  111. HYDROCHLOROTHIAZIDE [Concomitant]
     Active Substance: HYDROCHLOROTHIAZIDE
     Indication: Product used for unknown indication
     Dosage: UNK
  112. LEVEMIR [Concomitant]
     Active Substance: INSULIN DETEMIR
     Indication: Product used for unknown indication
     Dosage: UNK
  113. LYRICA [Concomitant]
     Active Substance: PREGABALIN
     Indication: Product used for unknown indication
     Dosage: UNK
  114. PANTOPRAZOLE [Concomitant]
     Active Substance: PANTOPRAZOLE
     Indication: Product used for unknown indication
     Dosage: UNK
  115. TELMISARTAN [Concomitant]
     Active Substance: TELMISARTAN
     Indication: Product used for unknown indication
     Dosage: UNK
  116. TYLENOL [Concomitant]
     Active Substance: ACETAMINOPHEN
     Indication: Product used for unknown indication
     Dosage: UNK

REACTIONS (53)
  - Adjustment disorder [Recovered/Resolved]
  - Affect lability [Recovered/Resolved]
  - Angina pectoris [Not Recovered/Not Resolved]
  - Anxiety [Recovered/Resolved]
  - Aphasia [Recovered/Resolved]
  - Arterial occlusive disease [Not Recovered/Not Resolved]
  - Arthritis [Not Recovered/Not Resolved]
  - Blood pressure increased [Not Recovered/Not Resolved]
  - Carotid artery thrombosis [Recovered/Resolved]
  - Cataract [Not Recovered/Not Resolved]
  - Cerebrovascular accident [Recovered/Resolved]
  - Chest discomfort [Not Recovered/Not Resolved]
  - Confusional state [Recovered/Resolved]
  - Coordination abnormal [Recovered/Resolved]
  - Cough [Not Recovered/Not Resolved]
  - Cystitis [Not Recovered/Not Resolved]
  - Dysarthria [Recovered/Resolved]
  - Dysphagia [Recovered/Resolved]
  - Eating disorder [Recovered/Resolved]
  - Fall [Recovered/Resolved]
  - Fatigue [Not Recovered/Not Resolved]
  - Gangrene [Not Recovered/Not Resolved]
  - Gastrointestinal disorder [Not Recovered/Not Resolved]
  - Headache [Not Recovered/Not Resolved]
  - Hemiparesis [Recovered/Resolved]
  - Hemiplegia [Recovered/Resolved]
  - Influenza [Not Recovered/Not Resolved]
  - Influenza like illness [Not Recovered/Not Resolved]
  - Malaise [Not Recovered/Not Resolved]
  - Motor dysfunction [Recovered/Resolved]
  - Muscle spasticity [Recovered/Resolved]
  - Muscular weakness [Recovered/Resolved]
  - Nasopharyngitis [Not Recovered/Not Resolved]
  - Nausea [Recovered/Resolved]
  - Neurologic neglect syndrome [Recovered/Resolved]
  - Pain [Not Recovered/Not Resolved]
  - Palpitations [Not Recovered/Not Resolved]
  - Personality disorder [Recovered/Resolved]
  - Pneumonia [Not Recovered/Not Resolved]
  - Psoriasis [Not Recovered/Not Resolved]
  - Pyrexia [Not Recovered/Not Resolved]
  - Respiratory tract congestion [Not Recovered/Not Resolved]
  - Rheumatoid arthritis [Not Recovered/Not Resolved]
  - Rhinorrhoea [Not Recovered/Not Resolved]
  - Sensory loss [Recovered/Resolved]
  - Sinus congestion [Not Recovered/Not Resolved]
  - Sinus disorder [Not Recovered/Not Resolved]
  - Sinusitis [Not Recovered/Not Resolved]
  - Skin exfoliation [Not Recovered/Not Resolved]
  - Asthenia [Recovered/Resolved]
  - Skin haemorrhage [Not Recovered/Not Resolved]
  - Sneezing [Not Recovered/Not Resolved]
  - Vomiting [Not Recovered/Not Resolved]
